FAERS Safety Report 5716859-1 (Version None)
Quarter: 2008Q2

REPORT INFORMATION
  Report Type: 
  Country: None (occurrence: None)
  Receive Date: 20080422
  Receipt Date: 20080408
  Transmission Date: 20081010
  Serious: Yes (Life-Threatening)
  Sender: FDA-Public Use
  Company Number: FABR-1000129

PATIENT
  Age: 45 Year
  Sex: Male

DRUGS (1)
  1. FABRAZYME [Suspect]
     Indication: FABRY'S DISEASE
     Dosage: 54 MG, INTRAVENOUS
     Route: 042
     Dates: start: 20080221, end: 20080306

REACTIONS (6)
  - ANAPHYLACTIC REACTION [None]
  - BLOOD IMMUNOGLOBULIN G INCREASED [None]
  - HYPERTENSION [None]
  - HYPOGLYCAEMIA [None]
  - SHOCK [None]
  - TACHYCARDIA [None]
